FAERS Safety Report 8914349 (Version 1)
Quarter: 2012Q4

REPORT INFORMATION
  Report Type: 
  Country: SG (occurrence: SG)
  Receive Date: 20121118
  Receipt Date: 20121118
  Transmission Date: 20130627
  Serious: Yes (Hospitalization)
  Sender: FDA-Public Use
  Company Number: SG-MYLANLABS-2012S1023021

PATIENT
  Age: 12 Year
  Sex: Male

DRUGS (3)
  1. OMEPRAZOLE [Suspect]
     Indication: HELICOBACTER GASTRITIS
     Dosage: 0.6 mg/kg
     Route: 065
  2. CLARITHROMYCIN [Interacting]
     Indication: HELICOBACTER GASTRITIS
     Route: 065
  3. AMOXICILLIN [Concomitant]
     Indication: HELICOBACTER GASTRITIS
     Route: 065

REACTIONS (2)
  - Myositis [Recovered/Resolved]
  - Drug interaction [Recovered/Resolved]
